FAERS Safety Report 11686120 (Version 2)
Quarter: 2015Q4

REPORT INFORMATION
  Report Type: Spontaneous
  Country: RS (occurrence: RS)
  Receive Date: 20151030
  Receipt Date: 20151126
  Transmission Date: 20160304
  Serious: Yes (Hospitalization)
  Sender: FDA-Public Use
  Company Number: RS-ROCHE-1652968

PATIENT
  Sex: Male

DRUGS (2)
  1. COPEGUS [Suspect]
     Active Substance: RIBAVIRIN
     Indication: CHRONIC HEPATITIS C
     Dosage: 2 TBL IN THE MORNING 2 TBL IN THE EVENING
     Route: 048
     Dates: start: 20150604, end: 20151022
  2. PEGASYS [Suspect]
     Active Substance: PEGINTERFERON ALFA-2A
     Indication: CHRONIC HEPATITIS C
     Route: 058
     Dates: start: 20150604, end: 20151022

REACTIONS (1)
  - Mental disorder [Recovered/Resolved with Sequelae]
